FAERS Safety Report 25270749 (Version 2)
Quarter: 2025Q2

REPORT INFORMATION
  Report Type: Report from Study
  Country: US (occurrence: US)
  Receive Date: 20250505
  Receipt Date: 20250603
  Transmission Date: 20250717
  Serious: Yes (Hospitalization, Disabling)
  Sender: ABBVIE
  Company Number: US-ABBVIE-6261895

PATIENT
  Sex: Male

DRUGS (3)
  1. HUMIRA [Suspect]
     Active Substance: ADALIMUMAB
     Indication: Product used for unknown indication
     Route: 058
     Dates: start: 20240115, end: 202503
  2. PREDNISONE [Concomitant]
     Active Substance: PREDNISONE
     Indication: Product used for unknown indication
  3. CORTISONE [Concomitant]
     Active Substance: CORTISONE
     Indication: Product used for unknown indication

REACTIONS (2)
  - Blindness unilateral [Recovered/Resolved]
  - Pulmonary oedema [Recovering/Resolving]
